FAERS Safety Report 18993755 (Version 2)
Quarter: 2021Q1

REPORT INFORMATION
  Report Type: Spontaneous
  Country: US (occurrence: US)
  Receive Date: 20210311
  Receipt Date: 20210314
  Transmission Date: 20210420
  Serious: No
  Sender: FDA-Public Use
  Company Number: US-SA-2021SA081096

PATIENT
  Age: 22 Year
  Sex: Female

DRUGS (3)
  1. PROTOPIC [Concomitant]
     Active Substance: TACROLIMUS
  2. TRIAMCINOLONE [Concomitant]
     Active Substance: TRIAMCINOLONE
  3. DUPIXENT [Suspect]
     Active Substance: DUPILUMAB
     Indication: DERMATITIS ATOPIC
     Dosage: 300 MG, QOW
     Route: 058
     Dates: start: 20210212

REACTIONS (2)
  - Injection site irritation [Unknown]
  - Injection site rash [Unknown]

NARRATIVE: CASE EVENT DATE: 20210305
